FAERS Safety Report 20167611 (Version 12)
Quarter: 2022Q2

REPORT INFORMATION
  Report Type: Spontaneous
  Country: JP (occurrence: JP)
  Receive Date: 20211209
  Receipt Date: 20220512
  Transmission Date: 20220720
  Serious: Yes (Hospitalization, Other)
  Sender: FDA-Public Use
  Company Number: JP-ONO-2021JP030999

PATIENT
  Age: 71 Year
  Sex: Male
  Weight: 54.50 kg

DRUGS (62)
  1. YERVOY [Suspect]
     Active Substance: IPILIMUMAB
     Indication: Non-small cell lung cancer recurrent
     Dosage: 57.6 MG
     Route: 041
     Dates: start: 20210219, end: 20210402
  2. YERVOY [Suspect]
     Active Substance: IPILIMUMAB
  3. OPDIVO [Suspect]
     Active Substance: NIVOLUMAB
     Indication: Non-small cell lung cancer recurrent
     Dosage: 360 MG
     Route: 041
     Dates: start: 20210219, end: 20210402
  4. INFLIXIMAB [Suspect]
     Active Substance: INFLIXIMAB
     Indication: Colitis
     Dosage: #1
     Route: 065
     Dates: start: 20210607
  5. INFLIXIMAB [Suspect]
     Active Substance: INFLIXIMAB
     Dosage: 5 MG/KG
  6. PREDNISOLONE [Suspect]
     Active Substance: PREDNISOLONE
     Indication: Colitis
     Dosage: #10
     Dates: start: 20210601, end: 20210603
  7. PREDNISOLONE [Suspect]
     Active Substance: PREDNISOLONE
     Dosage: 55 MG
     Route: 048
     Dates: start: 20210604
  8. PREDNISOLONE [Suspect]
     Active Substance: PREDNISOLONE
     Dosage: 55 MG
     Route: 042
  9. PREDNISOLONE [Suspect]
     Active Substance: PREDNISOLONE
     Dosage: 40 MG
     Route: 042
  10. PREDNISOLONE [Suspect]
     Active Substance: PREDNISOLONE
     Dosage: 30 MG
     Route: 042
  11. PREDNISOLONE [Suspect]
     Active Substance: PREDNISOLONE
     Dosage: 25 MG
     Route: 042
  12. PREDNISOLONE [Suspect]
     Active Substance: PREDNISOLONE
     Dosage: 50 MG
     Route: 042
     Dates: start: 20210706
  13. PREDNISOLONE [Suspect]
     Active Substance: PREDNISOLONE
     Dosage: 55 MG
     Route: 042
  14. PREDNISOLONE [Suspect]
     Active Substance: PREDNISOLONE
     Dosage: 110 MG
     Route: 042
  15. PREDNISOLONE [Suspect]
     Active Substance: PREDNISOLONE
     Dosage: 55 MG
     Route: 042
  16. PREDNISOLONE [Suspect]
     Active Substance: PREDNISOLONE
     Dosage: 80 MG
     Route: 042
     Dates: start: 20210730
  17. PREDNISOLONE [Suspect]
     Active Substance: PREDNISOLONE
     Dosage: 50 MG
     Route: 042
  18. PREDNISOLONE [Suspect]
     Active Substance: PREDNISOLONE
     Dosage: 40 MG
     Route: 042
  19. PREDNISOLONE [Suspect]
     Active Substance: PREDNISOLONE
     Dosage: 40 MG
     Route: 048
  20. PREDNISOLONE [Suspect]
     Active Substance: PREDNISOLONE
     Dosage: 30 MG
     Route: 048
  21. PREDNISOLONE [Suspect]
     Active Substance: PREDNISOLONE
     Dosage: 25 MG
     Route: 048
  22. PREDNISOLONE [Suspect]
     Active Substance: PREDNISOLONE
     Dosage: 50 MG
     Route: 048
  23. PREDNISOLONE [Suspect]
     Active Substance: PREDNISOLONE
     Dosage: 40 MG
     Route: 048
  24. PREDNISOLONE [Suspect]
     Active Substance: PREDNISOLONE
     Dosage: 30 MG
     Route: 048
  25. PREDNISOLONE [Suspect]
     Active Substance: PREDNISOLONE
     Dosage: 20 MG
     Route: 048
  26. PREDNISOLONE [Suspect]
     Active Substance: PREDNISOLONE
     Dosage: 40 MG
     Route: 048
  27. PREDNISOLONE [Suspect]
     Active Substance: PREDNISOLONE
     Dosage: UNK
     Route: 048
  28. PREDNISOLONE [Suspect]
     Active Substance: PREDNISOLONE
     Dosage: 5 MG
     Route: 048
  29. PREDNISOLONE [Suspect]
     Active Substance: PREDNISOLONE
     Dosage: #2
  30. PREDNISOLONE [Suspect]
     Active Substance: PREDNISOLONE
     Dosage: 110 MG
  31. PREDNISOLONE [Suspect]
     Active Substance: PREDNISOLONE
     Dosage: #3
  32. PREDNISOLONE [Suspect]
     Active Substance: PREDNISOLONE
     Dosage: #4
  33. PREDNISOLONE [Suspect]
     Active Substance: PREDNISOLONE
     Dosage: 40 MG
  34. PREDNISOLONE [Suspect]
     Active Substance: PREDNISOLONE
     Dosage: #5
  35. PREDNISOLONE [Suspect]
     Active Substance: PREDNISOLONE
     Dosage: 30 MG
  36. PREDNISOLONE [Suspect]
     Active Substance: PREDNISOLONE
     Dosage: #6
  37. PREDNISOLONE [Suspect]
     Active Substance: PREDNISOLONE
     Dosage: 25 MG
  38. PREDNISOLONE [Suspect]
     Active Substance: PREDNISOLONE
     Dosage: #7
  39. PREDNISOLONE [Suspect]
     Active Substance: PREDNISOLONE
     Dosage: 50 MG
  40. PREDNISOLONE [Suspect]
     Active Substance: PREDNISOLONE
     Dosage: #8
  41. PREDNISOLONE [Suspect]
     Active Substance: PREDNISOLONE
     Dosage: #9
  42. PREDNISOLONE [Suspect]
     Active Substance: PREDNISOLONE
     Dosage: #11
  43. PREDNISOLONE [Suspect]
     Active Substance: PREDNISOLONE
     Dosage: 80 MG
  44. PREDNISOLONE [Suspect]
     Active Substance: PREDNISOLONE
     Dosage: #12
  45. PREDNISOLONE [Suspect]
     Active Substance: PREDNISOLONE
     Dosage: #13
  46. PREDNISOLONE [Suspect]
     Active Substance: PREDNISOLONE
     Dosage: 20 MG
  47. PREDNISOLONE [Suspect]
     Active Substance: PREDNISOLONE
     Dosage: UNK
  48. VEDOLIZUMAB [Suspect]
     Active Substance: VEDOLIZUMAB
     Indication: Colitis
     Dosage: UNK
     Route: 065
     Dates: start: 20210722
  49. VEDOLIZUMAB [Suspect]
     Active Substance: VEDOLIZUMAB
     Dosage: #1
  50. VEDOLIZUMAB [Suspect]
     Active Substance: VEDOLIZUMAB
     Dosage: UNK
  51. CARBOPLATIN [Suspect]
     Active Substance: CARBOPLATIN
     Indication: Non-small cell lung cancer recurrent
     Route: 065
     Dates: start: 20210219
  52. CARBOPLATIN [Suspect]
     Active Substance: CARBOPLATIN
     Dosage: UNK
     Route: 065
     Dates: start: 202105
  53. CARBOPLATIN [Suspect]
     Active Substance: CARBOPLATIN
     Route: 041
     Dates: start: 20210430, end: 20211116
  54. PEMETREXED DISODIUM [Suspect]
     Active Substance: PEMETREXED DISODIUM
     Indication: Non-small cell lung cancer recurrent
     Route: 065
     Dates: start: 20210219
  55. PEMETREXED DISODIUM [Suspect]
     Active Substance: PEMETREXED DISODIUM
     Route: 065
     Dates: start: 202105
  56. PEMETREXED DISODIUM [Suspect]
     Active Substance: PEMETREXED DISODIUM
     Route: 041
     Dates: start: 20210430, end: 20211116
  57. NAFTOPIDIL [Concomitant]
     Active Substance: NAFTOPIDIL
     Indication: Product used for unknown indication
     Dosage: 75 MG, EVERYDAY
     Route: 048
  58. NAFTOPIDIL [Concomitant]
     Active Substance: NAFTOPIDIL
     Dosage: 75 MG, EVERYDAY
     Route: 048
  59. EDOXABAN TOSYLATE [Concomitant]
     Active Substance: EDOXABAN TOSYLATE
     Indication: Product used for unknown indication
     Route: 048
  60. EDOXABAN TOSYLATE [Concomitant]
     Active Substance: EDOXABAN TOSYLATE
  61. PANVITAN [ASCORBIC ACID;CALCIUM PANTOTHENATE;CYANOCOBALAMIN;ERGOCALCIF [Concomitant]
     Indication: Prophylaxis
     Route: 048
     Dates: start: 20210501
  62. BIO-THREE [Concomitant]
     Active Substance: HERBALS
     Indication: Prophylaxis
     Dosage: 2 TABLETS (NUMBERS OF ADMINISTRATION: 3)
     Route: 048
     Dates: start: 20210526

REACTIONS (4)
  - Bronchopulmonary aspergillosis [Recovered/Resolved]
  - Malignant neoplasm progression [Unknown]
  - Immune-mediated enterocolitis [Recovering/Resolving]
  - Cytomegalovirus colitis [Recovered/Resolved]

NARRATIVE: CASE EVENT DATE: 20210401
